FAERS Safety Report 6774057-7 (Version None)
Quarter: 2010Q2

REPORT INFORMATION
  Report Type: 
  Country: None (occurrence: None)
  Receive Date: 20100617
  Receipt Date: 20100610
  Transmission Date: 20101027
  Serious: Yes (Hospitalization)
  Sender: FDA-Public Use
  Company Number: PHHO2010NL07346

PATIENT
  Sex: Male
  Weight: 83.8 kg

DRUGS (3)
  1. AEB071 AEB+GELCAP [Suspect]
     Indication: RENAL TRANSPLANT
     Dosage: UNK
     Route: 048
     Dates: start: 20100217
  2. CERTICAN [Suspect]
     Indication: RENAL TRANSPLANT
     Dosage: 0.75 MG
     Route: 048
     Dates: start: 20100217
  3. PREDNISOLONE [Suspect]
     Indication: RENAL TRANSPLANT
     Dosage: UNK
     Route: 048
     Dates: start: 20100217

REACTIONS (6)
  - ABDOMINAL CAVITY DRAINAGE [None]
  - ABDOMINAL PAIN LOWER [None]
  - DRAIN REMOVAL [None]
  - INFECTED LYMPHOCELE [None]
  - LYMPHOCELE [None]
  - PYREXIA [None]
